FAERS Safety Report 8349152-1 (Version None)
Quarter: 2012Q2

REPORT INFORMATION
  Report Type: 
  Country: None (occurrence: None)
  Receive Date: 20120508
  Receipt Date: 20120425
  Transmission Date: 20120825
  Serious: Yes (Other)
  Sender: FDA-Public Use
  Company Number: AUR-APL-2012-01967

PATIENT
  Age: 79 Year
  Sex: Female

DRUGS (6)
  1. SIMVASTATIN [Concomitant]
  2. TILIDIEM LA (DILTIAZEM HYDROCHLORIDE) [Concomitant]
  3. RAMIPRIL [Concomitant]
  4. ASASANTIN RETARD (DIPYRIDAMOLE) [Concomitant]
  5. AMLODIPINE [Suspect]
     Indication: HYPERTENSION
     Dosage: 5 MG (5 MG,1 IN 1 D),ORAL
     Route: 048
     Dates: start: 20120329
  6. NICORANDIL (NICORDANIL) [Concomitant]

REACTIONS (4)
  - DYSPNOEA [None]
  - HYPERTENSION [None]
  - DYSARTHRIA [None]
  - PALPITATIONS [None]
